FAERS Safety Report 17303841 (Version 1)
Quarter: 2020Q1

REPORT INFORMATION
  Report Type: Other
  Country: CN (occurrence: CN)
  Receive Date: 20200122
  Receipt Date: 20200122
  Transmission Date: 20200409
  Serious: Yes (Other)
  Sender: FDA-Public Use
  Company Number: CN-CSPC OUYI PHARMACEUTICAL CO., LTD.-2079313

PATIENT
  Age: 39 Year
  Sex: Female
  Weight: 84 kg

DRUGS (1)
  1. AZITHROMYCIN ANHYDROUS. [Suspect]
     Active Substance: AZITHROMYCIN ANHYDROUS
     Indication: BRONCHITIS
     Route: 041
     Dates: start: 20181127, end: 20181127

REACTIONS (3)
  - Hypoaesthesia [Recovered/Resolved]
  - Chest discomfort [Recovered/Resolved]
  - Tachypnoea [Recovered/Resolved]

NARRATIVE: CASE EVENT DATE: 20181127
